FAERS Safety Report 8269326-8 (Version None)
Quarter: 2012Q2

REPORT INFORMATION
  Report Type: 
  Country: None (occurrence: None)
  Receive Date: 20120409
  Receipt Date: 20120329
  Transmission Date: 20120825
  Serious: Yes (Death)
  Sender: FDA-Public Use
  Company Number: CA-ROCHE-1055688

PATIENT
  Sex: Male
  Weight: 112.59 kg

DRUGS (4)
  1. NAPROXEN (ALEVE) [Concomitant]
  2. TYLENOL (CAPLET) [Concomitant]
  3. ACTEMRA [Suspect]
     Indication: RHEUMATOID ARTHRITIS
     Route: 042
     Dates: start: 20111004, end: 20111104
  4. METHOTREXATE [Concomitant]
     Route: 048

REACTIONS (1)
  - DEATH [None]
